FAERS Safety Report 22277933 (Version 3)
Quarter: 2024Q1

REPORT INFORMATION
  Report Type: Spontaneous
  Country: US (occurrence: US)
  Receive Date: 20230503
  Receipt Date: 20240222
  Transmission Date: 20240410
  Serious: No
  Sender: FDA-Public Use
  Company Number: US-GLAXOSMITHKLINE-US2023AMR063272

PATIENT

DRUGS (6)
  1. ZEJULA [Suspect]
     Active Substance: NIRAPARIB
     Indication: Periodontal disease
     Dosage: UNK
  2. ZEJULA [Suspect]
     Active Substance: NIRAPARIB
     Indication: Hyperlipidaemia
  3. ZEJULA [Suspect]
     Active Substance: NIRAPARIB
     Indication: Hypertension
  4. ZEJULA [Suspect]
     Active Substance: NIRAPARIB
     Indication: Periodontal disease
     Dosage: UNK
  5. ZEJULA [Suspect]
     Active Substance: NIRAPARIB
     Indication: Hyperlipidaemia
  6. ZEJULA [Suspect]
     Active Substance: NIRAPARIB
     Indication: Hypertension

REACTIONS (1)
  - Off label use [Unknown]
